FAERS Safety Report 6853609-X (Version None)
Quarter: 2010Q3

REPORT INFORMATION
  Report Type: 
  Country: None (occurrence: None)
  Receive Date: 20100717
  Receipt Date: 20071211
  Transmission Date: 20110219
  Serious: No
  Sender: FDA-Public Use
  Company Number: US-PFIZER INC-2007106082

PATIENT
  Sex: Female
  Weight: 56.8 kg

DRUGS (7)
  1. CHANTIX [Suspect]
     Indication: SMOKING CESSATION THERAPY
     Dates: start: 20071205
  2. PREMARIN [Concomitant]
  3. CYMBALTA [Concomitant]
  4. SYNTHROID [Concomitant]
     Indication: THYROID DISORDER
  5. ATIVAN [Concomitant]
  6. TERAZOSIN HCL [Concomitant]
  7. BUSPIRONE [Concomitant]

REACTIONS (2)
  - CYSTITIS [None]
  - URINARY TRACT INFECTION [None]
